FAERS Safety Report 5307265-2 (Version None)
Quarter: 2007Q2

REPORT INFORMATION
  Report Type: 
  Country: None (occurrence: None)
  Receive Date: 20070425
  Receipt Date: 20070417
  Transmission Date: 20071010
  Serious: Yes (Hospitalization)
  Sender: FDA-Public Use
  Company Number: FR-GLAXOSMITHKLINE-B0467577A

PATIENT
  Age: 9 Year
  Sex: Male

DRUGS (6)
  1. AUGMENTIN '125' [Suspect]
     Indication: LARYNGITIS
     Dosage: 500MG THREE TIMES PER DAY
     Route: 048
     Dates: start: 20070202, end: 20070212
  2. FLUIMUCIL [Suspect]
     Dosage: 200MG THREE TIMES PER DAY
     Route: 048
     Dates: start: 20070202, end: 20070212
  3. SILOMAT [Concomitant]
     Route: 048
     Dates: start: 20070209, end: 20070212
  4. LOPRIL [Concomitant]
  5. DIGOXIN [Concomitant]
  6. BACTRIM [Concomitant]

REACTIONS (3)
  - EOSINOPHILIA [None]
  - PRURIGO [None]
  - RASH SCARLATINIFORM [None]
